FAERS Safety Report 12101313 (Version 2)
Quarter: 2016Q1

REPORT INFORMATION
  Report Type: Spontaneous
  Country: US (occurrence: US)
  Receive Date: 20160222
  Receipt Date: 20160303
  Transmission Date: 20160526
  Serious: Yes (Other)
  Sender: FDA-Public Use
  Company Number: US-PFIZER INC-2016100524

PATIENT
  Age: 42 Year
  Sex: Female

DRUGS (4)
  1. BUTALBITAL [Concomitant]
     Active Substance: BUTALBITAL
     Dosage: UNK
  2. METAXALONE. [Suspect]
     Active Substance: METAXALONE
     Dosage: UNK
  3. PROMETHAZINE [Concomitant]
     Active Substance: PROMETHAZINE\PROMETHAZINE HYDROCHLORIDE
     Dosage: UNK
  4. CLONAZEPAM. [Concomitant]
     Active Substance: CLONAZEPAM
     Dosage: UNK

REACTIONS (6)
  - Drug abuse [Unknown]
  - Drug level above therapeutic [Unknown]
  - Road traffic accident [Unknown]
  - Mental impairment [Unknown]
  - Toxicity to various agents [Unknown]
  - Physical disability [Unknown]
